FAERS Safety Report 17572768 (Version 1)
Quarter: 2020Q1

REPORT INFORMATION
  Report Type: Spontaneous
  Country: US (occurrence: US)
  Receive Date: 20200323
  Receipt Date: 20200323
  Transmission Date: 20200409
  Serious: No
  Sender: FDA-Public Use
  Company Number: US-IPSEN BIOPHARMACEUTICALS, INC.-2020-05499

PATIENT
  Sex: Female

DRUGS (1)
  1. DYSPORT [Suspect]
     Active Substance: ABOBOTULINUMTOXINA
     Indication: TORTICOLLIS
     Dosage: 800 UNITS
     Route: 065
     Dates: start: 201908, end: 201908

REACTIONS (3)
  - Dysphagia [Recovered/Resolved]
  - Procedural anxiety [Unknown]
  - Gastrooesophageal reflux disease [Not Recovered/Not Resolved]
